FAERS Safety Report 19000649 (Version 6)
Quarter: 2022Q1

REPORT INFORMATION
  Report Type: Report from Study
  Country: US (occurrence: US)
  Receive Date: 20210312
  Receipt Date: 20220304
  Transmission Date: 20220424
  Serious: No
  Sender: FDA-Public Use
  Company Number: NVSC2021US049833

PATIENT
  Age: 33 Year
  Sex: Female

DRUGS (1)
  1. KESIMPTA [Suspect]
     Active Substance: OFATUMUMAB
     Indication: Multiple sclerosis
     Dosage: 20 MG
     Route: 058
     Dates: start: 20210226

REACTIONS (10)
  - Malaise [Unknown]
  - Toothache [Unknown]
  - Product storage error [Unknown]
  - Asthma [Unknown]
  - COVID-19 [Recovering/Resolving]
  - Fall [Recovered/Resolved]
  - Skin discolouration [Unknown]
  - Joint swelling [Unknown]
  - Arthralgia [Unknown]
  - Stress [Unknown]

NARRATIVE: CASE EVENT DATE: 20220101
